FAERS Safety Report 9648119 (Version 2)
Quarter: 2014Q2

REPORT INFORMATION
  Report Type: Report from Study
  Country: MX (occurrence: MX)
  Receive Date: 20131028
  Receipt Date: 20140626
  Transmission Date: 20141212
  Serious: Yes (Other)
  Sender: FDA-Public Use
  Company Number: PHHY2013MX121058

PATIENT
  Age: 48 Year
  Sex: Female

DRUGS (2)
  1. EXFORGE HCT [Suspect]
     Indication: HYPERTENSION
     Dosage: 1 TABLET (320/10/25 MG), DAILY
     Route: 048
     Dates: start: 20130612, end: 201307
  2. EXFORGE HCT [Suspect]
     Dosage: 0.5 TABLET (320/10/25 MG), DAILY
     Route: 048
     Dates: start: 201307, end: 201404

REACTIONS (2)
  - Arterial occlusive disease [Not Recovered/Not Resolved]
  - Wrong technique in drug usage process [Recovered/Resolved]
